FAERS Safety Report 7561347-3 (Version None)
Quarter: 2011Q2

REPORT INFORMATION
  Report Type: 
  Country: None (occurrence: None)
  Receive Date: 20110621
  Receipt Date: 20100730
  Transmission Date: 20111010
  Serious: No
  Sender: FDA-Public Use
  Company Number: US-ASTRAZENECA-2010SE35916

PATIENT
  Sex: Male

DRUGS (5)
  1. VITAMIN D [Concomitant]
  2. PULMICORT FLEXHALER [Suspect]
     Route: 055
  3. CALCIUM CARBONATE [Concomitant]
  4. EYE DROPS [Concomitant]
  5. VALIUM [Concomitant]

REACTIONS (7)
  - OROPHARYNGEAL PAIN [None]
  - ABDOMINAL PAIN UPPER [None]
  - DRY MOUTH [None]
  - COUGH [None]
  - BRUXISM [None]
  - NASAL INFLAMMATION [None]
  - NASAL CONGESTION [None]
